FAERS Safety Report 24568686 (Version 1)
Quarter: 2024Q4

REPORT INFORMATION
  Report Type: Spontaneous
  Country: NL (occurrence: NL)
  Receive Date: 20241031
  Receipt Date: 20241031
  Transmission Date: 20250114
  Serious: Yes (Other)
  Sender: BAXTER
  Company Number: None

PATIENT
  Age: 69 Year
  Sex: Male
  Weight: 72.4 kg

DRUGS (4)
  1. SODIUM CHLORIDE [Suspect]
     Active Substance: SODIUM CHLORIDE
     Indication: Rhabdomyolysis
     Dosage: 4 L PER DAY
     Route: 065
     Dates: start: 20241007, end: 20241009
  2. CLOPIDOGREL [Concomitant]
     Active Substance: CLOPIDOGREL BISULFATE
     Dosage: TABLET, 75 MG (MILLIGRAM)
     Route: 065
  3. OXYCODONE [Concomitant]
     Active Substance: OXYCODONE
     Dosage: CAPSULE, 5 MG (MILLIGRAM)
     Route: 065
  4. BARNIDIPINE [Concomitant]
     Active Substance: BARNIDIPINE
     Dosage: EXTENDED RELEASE CAPSULE, 10 MG (MILLIGRAMS)
     Route: 065

REACTIONS (2)
  - Hypokalaemia [Recovered/Resolved]
  - Hypernatraemia [Recovered/Resolved]
